FAERS Safety Report 13246679 (Version 42)
Quarter: 2025Q4

REPORT INFORMATION
  Report Type: Report from Study
  Country: GB (occurrence: GB)
  Receive Date: 20170217
  Receipt Date: 20251227
  Transmission Date: 20260119
  Serious: Yes (Hospitalization, Other)
  Sender: ACCORD
  Company Number: None

PATIENT
  Age: 55 Year
  Sex: Male

DRUGS (50)
  1. FUROSEMIDE [Interacting]
     Active Substance: FUROSEMIDE
     Indication: Left ventricular dysfunction
     Dosage: 40 MG, QD
     Dates: start: 20160402
  2. RAMIPRIL [Interacting]
     Active Substance: RAMIPRIL
     Indication: Cardiac failure
     Dosage: 1.25 MG, QD
     Route: 048
     Dates: start: 20130813, end: 20160629
  3. QUETIAPINE FUMARATE [Interacting]
     Active Substance: QUETIAPINE FUMARATE
     Indication: Depression
     Route: 048
     Dates: start: 20150826
  4. ISOSORBIDE MONONITRATE [Interacting]
     Active Substance: ISOSORBIDE MONONITRATE
     Indication: Angina pectoris
     Dosage: ORAL FORMULATION: DURULE, 10 MG, QD
     Route: 048
     Dates: start: 20160205
  5. OMEPRAZOLE [Interacting]
     Active Substance: OMEPRAZOLE
     Indication: Dyspepsia
     Route: 048
     Dates: start: 20140116
  6. IVABRADINE HYDROCHLORIDE [Interacting]
     Active Substance: IVABRADINE HYDROCHLORIDE
     Indication: Angina pectoris
     Dosage: 5 MG, QD, ALSO RECEIVED 10 MG
     Dates: start: 20150211
  7. VALSARTAN [Suspect]
     Active Substance: VALSARTAN
     Indication: Product used for unknown indication
  8. CODEINE PHOSPHATE [Suspect]
     Active Substance: CODEINE PHOSPHATE
     Indication: Product used for unknown indication
  9. CARVEDILOL [Interacting]
     Active Substance: CARVEDILOL
     Indication: Angina pectoris
     Dosage: 25 MG, QD, (25 MILLIGRAM, BID), ALSO RECEIVED 50 MG
     Dates: start: 20110616
  10. BOCOCIZUMAB [Interacting]
     Active Substance: BOCOCIZUMAB
     Indication: Cardiovascular disorder
     Dosage: 150 MG, QOW, EVERY 2 WEEKS
     Route: 058
     Dates: start: 20150908, end: 20161101
  11. CARVEDILOL [Suspect]
     Active Substance: CARVEDILOL
     Indication: Angina pectoris
     Dosage: DOSAGE TEXT: NUMBER OF SEPARATE DOSES: 2
     Dates: start: 20110616
  12. ASPIRIN [Concomitant]
     Active Substance: ASPIRIN
     Indication: Cardiovascular disorder
     Dates: start: 20130708
  13. ATORVASTATIN [Concomitant]
     Active Substance: ATORVASTATIN
     Indication: Cardiovascular disorder
     Dates: start: 20130708
  14. BETAMETHASONE DIPROPIONATE\CLOTRIMAZOLE [Concomitant]
     Active Substance: BETAMETHASONE DIPROPIONATE\CLOTRIMAZOLE
     Indication: Psoriasis
     Dates: start: 20150626
  15. SACUBITRIL\VALSARTAN [Concomitant]
     Active Substance: SACUBITRIL\VALSARTAN
     Indication: Left ventricular dysfunction
     Dosage: SACUBITRIL (STRENGTH: 24MG) VALSARTAN (STRENGTH: 26MG), 49/51
     Route: 048
     Dates: start: 20160701
  16. FOLIC ACID [Concomitant]
     Active Substance: FOLIC ACID
     Indication: Anaemia
     Dates: start: 20131211
  17. NITROGLYCERIN [Concomitant]
     Active Substance: NITROGLYCERIN
     Indication: Cardiovascular disorder
     Dates: start: 20130902
  18. ACETAMINOPHEN\CODEINE PHOSPHATE [Concomitant]
     Active Substance: ACETAMINOPHEN\CODEINE PHOSPHATE
     Indication: Pain in extremity
     Dates: start: 20110616
  19. METHOTREXATE [Concomitant]
     Active Substance: METHOTREXATE
     Indication: Psoriasis
     Dates: start: 20150727
  20. SERTRALINE HYDROCHLORIDE [Concomitant]
     Active Substance: SERTRALINE HYDROCHLORIDE
     Indication: Depression
     Dates: start: 20110816
  21. CODEINE PHOSPHATE [Concomitant]
     Active Substance: CODEINE PHOSPHATE
  22. ACETAMINOPHEN [Concomitant]
     Active Substance: ACETAMINOPHEN
     Indication: Pain in extremity
     Dates: start: 20110616
  23. OMEPRAZOLE [Concomitant]
     Active Substance: OMEPRAZOLE
     Indication: Dyspepsia
     Dates: start: 20140116
  24. QUETIAPINE FUMARATE [Concomitant]
     Active Substance: QUETIAPINE FUMARATE
     Indication: Depression
     Route: 048
     Dates: start: 20150826
  25. SACUBITRIL [Concomitant]
     Active Substance: SACUBITRIL
     Indication: Left ventricular dysfunction
     Dosage: 49/51
     Dates: start: 20160701
  26. BOCOCIZUMAB [Concomitant]
     Active Substance: BOCOCIZUMAB
     Indication: Cardiovascular disorder
     Route: 058
     Dates: start: 20110616
  27. IVABRADINE [Concomitant]
     Active Substance: IVABRADINE
     Indication: Angina pectoris
     Dosage: 5 MILLIGRAM, QD
     Dates: start: 20150211
  28. RAMIPRIL [Interacting]
     Active Substance: RAMIPRIL
     Indication: Cardiac failure
     Route: 048
     Dates: start: 20130813, end: 20160629
  29. OMEPRAZOLE [Interacting]
     Active Substance: OMEPRAZOLE
     Indication: Dyspepsia
     Route: 048
     Dates: start: 20110616
  30. FUROSEMIDE [Interacting]
     Active Substance: FUROSEMIDE
     Indication: Left ventricular dysfunction
  31. BOCOCIZUMAB [Interacting]
     Active Substance: BOCOCIZUMAB
     Indication: Cardiovascular disorder
     Dosage: 100 MG, QW (50 MG, 2/WEEK-50 MG, QD (25 MG, BID))
     Dates: start: 20110616
  32. IVABRADINE HYDROCHLORIDE [Interacting]
     Active Substance: IVABRADINE HYDROCHLORIDE
     Indication: Angina pectoris
  33. SERTRALINE HYDROCHLORIDE [Concomitant]
     Active Substance: SERTRALINE HYDROCHLORIDE
     Indication: Depression
     Dosage: 49/51
     Dates: start: 20110701
  34. SERTRALINE HYDROCHLORIDE [Concomitant]
     Active Substance: SERTRALINE HYDROCHLORIDE
     Indication: Depression
     Dates: start: 20110616
  35. BETAMETHASONE DIPROPIONATE\CLOTRIMAZOLE [Concomitant]
     Active Substance: BETAMETHASONE DIPROPIONATE\CLOTRIMAZOLE
     Indication: Psoriasis
  36. ATORVASTATIN [Concomitant]
     Active Substance: ATORVASTATIN
     Indication: Cardiovascular disorder
     Dates: start: 20150623
  37. ACETAMINOPHEN [Concomitant]
     Active Substance: ACETAMINOPHEN
     Indication: Pain in extremity
     Dates: start: 20160616
  38. SACUBITRIL\VALSARTAN [Concomitant]
     Active Substance: SACUBITRIL\VALSARTAN
     Indication: Left ventricular dysfunction
     Dosage: 49/51
     Dates: start: 20160601
  39. SERTRALINE HYDROCHLORIDE [Concomitant]
     Active Substance: SERTRALINE HYDROCHLORIDE
     Indication: Ventricular dysfunction
     Dosage: 49/51
     Route: 065
     Dates: start: 20160701
  40. BOCOCIZUMAB [Interacting]
     Active Substance: BOCOCIZUMAB
     Indication: Cardiovascular disorder
     Dosage: 50 MG, QD (25 MG, BID)
     Route: 058
     Dates: start: 20110616
  41. RAMIPRIL [Interacting]
     Active Substance: RAMIPRIL
     Indication: Cardiac failure
     Dosage: 1 MG, QD
     Route: 048
     Dates: start: 20130813, end: 20160629
  42. SACUBITRIL [Concomitant]
     Active Substance: SACUBITRIL
     Indication: Left ventricular dysfunction
     Dosage: 49/51
     Dates: start: 20160601
  43. BOCOCIZUMAB [Concomitant]
     Active Substance: BOCOCIZUMAB
     Indication: Cardiovascular disorder
     Dosage: 150 MILLIGRAM, BIWEEKLY, FREQUENCY- EVERY 2 WEEKS
     Route: 058
     Dates: start: 20150908, end: 20161101
  44. BOCOCIZUMAB [Interacting]
     Active Substance: BOCOCIZUMAB
     Indication: Cardiovascular disorder
     Dosage: BIWEEKLY (50 MG, QOW (50, EVERY 2 WEEKS
     Route: 058
     Dates: start: 20110616
  45. FUROSEMIDE [Interacting]
     Active Substance: FUROSEMIDE
     Indication: Pulmonary oedema
     Dosage: 80 MG, QD
     Route: 048
     Dates: start: 20160402
  46. IVABRADINE HYDROCHLORIDE [Interacting]
     Active Substance: IVABRADINE HYDROCHLORIDE
     Indication: Angina pectoris
     Dosage: 5 MG, BID, 12 HOURLY
     Dates: start: 20150211
  47. IVABRADINE HYDROCHLORIDE [Interacting]
     Active Substance: IVABRADINE HYDROCHLORIDE
     Indication: Angina pectoris
     Dosage: 10 MG, QD (5 MG BID)
     Dates: start: 20150211
  48. CARVEDILOL [Interacting]
     Active Substance: CARVEDILOL
     Indication: Angina pectoris
     Dosage: 50 MILLIGRAM, QD (25MG, BID)
     Dates: start: 20110616
  49. IVABRADINE [Concomitant]
     Active Substance: IVABRADINE
     Indication: Angina pectoris
     Dosage: 10 MILLIGRAM, QD (5 MG BID)
     Dates: start: 20150211
  50. BOCOCIZUMAB [Interacting]
     Active Substance: BOCOCIZUMAB
     Indication: Cardiovascular disorder
     Dosage: 25 MG, BID, 50 MG DAILY
     Dates: start: 20110616

REACTIONS (14)
  - Fluid retention [Not Recovered/Not Resolved]
  - Psoriasis [Unknown]
  - Anaemia [Unknown]
  - Presyncope [Unknown]
  - Contusion [Recovered/Resolved]
  - Hypotension [Recovered/Resolved]
  - Angina pectoris [Unknown]
  - Cardiac failure [Unknown]
  - Ventricular dysfunction [Unknown]
  - Condition aggravated [Unknown]
  - Oedema peripheral [Not Recovered/Not Resolved]
  - Drug interaction [Recovered/Resolved]
  - Off label use [Unknown]
  - Pulmonary oedema [Unknown]
